FAERS Safety Report 25439743 (Version 1)
Quarter: 2025Q2

REPORT INFORMATION
  Report Type: Report from Study
  Country: AR (occurrence: AR)
  Receive Date: 20250616
  Receipt Date: 20250616
  Transmission Date: 20250716
  Serious: Yes (Other)
  Sender: NOVARTIS
  Company Number: AR-002147023-NVSC2025AR095434

PATIENT
  Sex: Male

DRUGS (1)
  1. COSENTYX [Suspect]
     Active Substance: SECUKINUMAB
     Indication: Axial spondyloarthritis
     Dosage: 300 MG, QMO
     Route: 058
     Dates: start: 20250122

REACTIONS (9)
  - Pneumonia [Unknown]
  - Arthralgia [Unknown]
  - Pain in extremity [Unknown]
  - White blood cell count increased [Unknown]
  - Sensory loss [Unknown]
  - Spinal pain [Not Recovered/Not Resolved]
  - Chest pain [Not Recovered/Not Resolved]
  - Condition aggravated [Not Recovered/Not Resolved]
  - Respiration abnormal [Not Recovered/Not Resolved]
